FAERS Safety Report 19677731 (Version 2)
Quarter: 2021Q3

REPORT INFORMATION
  Report Type: Report from Study
  Country: None (occurrence: US)
  Receive Date: 20210810
  Receipt Date: 20210921
  Transmission Date: 20211014
  Serious: Yes (Other)
  Sender: FDA-Public Use
  Company Number: US-ABBVIE-21K-163-4029268-00

PATIENT
  Age: 29 Year
  Sex: Female
  Weight: 129.39 kg

DRUGS (1)
  1. HUMIRA [Suspect]
     Active Substance: ADALIMUMAB
     Indication: CROHN^S DISEASE
     Dosage: CITRATE FREE
     Route: 058
     Dates: end: 20210709

REACTIONS (2)
  - Fistula [Unknown]
  - Post procedural infection [Unknown]

NARRATIVE: CASE EVENT DATE: 20210730
